FAERS Safety Report 5259321-5 (Version None)
Quarter: 2007Q1

REPORT INFORMATION
  Report Type: 
  Country: None (occurrence: None)
  Receive Date: 20070305
  Receipt Date: 20070220
  Transmission Date: 20070707
  Serious: Yes (Death, Life-Threatening, Disabling)
  Sender: FDA-Public Use
  Company Number: OSCN-NO-0604S-0093

PATIENT
  Age: 47 Year
  Sex: Male

DRUGS (1)
  1. OMNISCAN [Suspect]
     Dosage: 18 ML, SINGLE DOSE, I.V.
     Route: 042
     Dates: start: 20040211, end: 20040211

REACTIONS (3)
  - CACHEXIA [None]
  - NEPHROGENIC FIBROSING DERMOPATHY [None]
  - PNEUMONIA [None]
